FAERS Safety Report 9422266 (Version 3)
Quarter: 2013Q4

REPORT INFORMATION
  Report Type: Report from Study
  Country: BE (occurrence: BE)
  Receive Date: 20130726
  Receipt Date: 20131118
  Transmission Date: 20140711
  Serious: Yes (Hospitalization)
  Sender: FDA-Public Use
  Company Number: BE-SANOFI-AVENTIS-2013SA039372

PATIENT
  Age: 70 Year
  Sex: Male

DRUGS (8)
  1. CABAZITAXEL [Suspect]
     Indication: SQUAMOUS CELL CARCINOMA OF HEAD AND NECK
     Route: 042
     Dates: start: 20130212, end: 20130212
  2. CABAZITAXEL [Suspect]
     Indication: SQUAMOUS CELL CARCINOMA OF HEAD AND NECK
     Route: 042
     Dates: start: 20130326, end: 20130326
  3. KREDEX [Concomitant]
     Route: 048
  4. PANTOPRAZOLE [Concomitant]
     Route: 048
  5. COVERSYL [Concomitant]
     Route: 048
  6. ALDACTONE [Concomitant]
     Route: 048
  7. ZOCOR [Concomitant]
     Route: 048
  8. LYSOMUCIL [Concomitant]
     Dosage: DOSE: 600 (UNITS UNSPECIFIED)
     Route: 048

REACTIONS (2)
  - Haematuria [Unknown]
  - Renal colic [Recovered/Resolved]
